FAERS Safety Report 16411111 (Version 1)
Quarter: 2019Q2

REPORT INFORMATION
  Report Type: Spontaneous
  Country: US (occurrence: US)
  Receive Date: 20190610
  Receipt Date: 20190610
  Transmission Date: 20190711
  Serious: Yes (Other)
  Sender: FDA-Public Use
  Company Number: US-JNJFOC-20190609067

PATIENT
  Age: 32 Year
  Sex: Male

DRUGS (1)
  1. RISPERDAL [Suspect]
     Active Substance: RISPERIDONE
     Indication: PRODUCT USED FOR UNKNOWN INDICATION
     Dosage: 3 MG AND 4 MG
     Route: 048
     Dates: start: 20110125, end: 20130116

REACTIONS (6)
  - Gynaecomastia [Unknown]
  - Breast discharge [Unknown]
  - Weight increased [Unknown]
  - Pituitary tumour [Unknown]
  - Sexual dysfunction [Unknown]
  - Emotional distress [Unknown]

NARRATIVE: CASE EVENT DATE: 20110226
